FAERS Safety Report 7128308-X (Version None)
Quarter: 2010Q4

REPORT INFORMATION
  Report Type: 
  Country: None (occurrence: None)
  Receive Date: 20101130
  Receipt Date: 20101118
  Transmission Date: 20110411
  Serious: Yes (Disabling)
  Sender: FDA-Public Use
  Company Number: PHHY2010US22882

PATIENT
  Age: 54 Year
  Sex: Male
  Weight: 83 kg

DRUGS (13)
  1. MYFORTIC [Suspect]
     Indication: LIVER TRANSPLANT
     Dosage: 1400 MG, QD
     Route: 048
     Dates: start: 20080526
  2. MYFORTIC [Suspect]
     Indication: IMMUNOSUPPRESSION
     Dosage: 720 MG, QD
     Dates: start: 20090921
  3. MYFORTIC [Suspect]
     Indication: PROPHYLAXIS AGAINST TRANSPLANT REJECTION
  4. PROGRAF [Concomitant]
     Indication: LIVER TRANSPLANT
     Dosage: 6 MG, QD
     Route: 048
     Dates: start: 20080512
  5. PROGRAF [Concomitant]
     Indication: PROPHYLAXIS AGAINST TRANSPLANT REJECTION
  6. PROTONIX [Concomitant]
     Indication: PROPHYLAXIS AGAINST GASTROINTESTINAL ULCER
     Dosage: 40 MG, QD
     Route: 048
     Dates: start: 20080512
  7. ASPIRIN [Concomitant]
     Indication: ATHEROSCLEROSIS PROPHYLAXIS
     Dosage: 81 MG/DAY
     Route: 048
     Dates: start: 20000418
  8. ACTIGALL [Concomitant]
     Indication: CHOLECYSTECTOMY
     Dosage: 600 MG, QD
     Route: 048
     Dates: start: 20080527
  9. COZAAR [Concomitant]
     Indication: HYPERTENSION
     Dosage: 25 MG, QD
     Route: 048
     Dates: start: 20080703
  10. SEPTRA [Concomitant]
     Indication: INFECTION
     Dosage: 3X400 MG-80 MG WEEKLY
     Route: 048
     Dates: start: 20080519
  11. AMBIEN [Concomitant]
     Indication: INSOMNIA
     Dosage: 10 MG/DAY
     Route: 048
     Dates: start: 20010418
  12. CALCIUM [Concomitant]
     Indication: OSTEOPENIA
     Dosage: 1200 MG DAILY
     Route: 048
     Dates: start: 20080526
  13. VITAMIN D [Concomitant]
     Indication: OSTEOPENIA
     Dosage: 200 UNITS DAILY
     Route: 048
     Dates: start: 20080526

REACTIONS (1)
  - MEMORY IMPAIRMENT [None]
